FAERS Safety Report 8876175 (Version 1)
Quarter: 2012Q4

REPORT INFORMATION
  Report Type: 
  Country: US (occurrence: US)
  Receive Date: 20121023
  Receipt Date: 20121023
  Transmission Date: 20130627
  Serious: No
  Sender: FDA-Public Use
  Company Number: US-ASTRAZENECA-2012SE78444

PATIENT
  Age: 55 Year
  Sex: Female
  Weight: 104.8 kg

DRUGS (9)
  1. SEROQUEL XR [Suspect]
     Indication: BIPOLAR I DISORDER
     Route: 048
     Dates: start: 2007, end: 2012
  2. SEROQUEL XR [Suspect]
     Indication: BIPOLAR DISORDER
     Route: 048
     Dates: start: 2007, end: 2012
  3. SEROQUEL XR [Suspect]
     Indication: BIPOLAR I DISORDER
     Route: 048
     Dates: start: 2012, end: 20121009
  4. SEROQUEL XR [Suspect]
     Indication: BIPOLAR DISORDER
     Route: 048
     Dates: start: 2012, end: 20121009
  5. METFORMIN [Concomitant]
  6. CLONAZEPAM [Concomitant]
     Indication: ANXIETY
     Route: 048
     Dates: start: 2007
  7. CLONAZEPAM [Concomitant]
     Indication: ANXIETY
     Route: 048
     Dates: start: 2007
  8. SIMVASTATIN [Concomitant]
     Indication: BLOOD CHOLESTEROL ABNORMAL
     Route: 048
     Dates: start: 2012
  9. MULTIPLE VITAMIN [Concomitant]
     Dosage: DAILY
     Route: 048

REACTIONS (7)
  - Diabetes mellitus [Unknown]
  - Insomnia [Unknown]
  - Skeletal injury [Unknown]
  - Back pain [Unknown]
  - Weight decreased [Unknown]
  - Fall [Unknown]
  - Intentional drug misuse [Unknown]
